FAERS Safety Report 15483596 (Version 1)
Quarter: 2018Q4

REPORT INFORMATION
  Report Type: Spontaneous
  Country: FR (occurrence: FR)
  Receive Date: 20181010
  Receipt Date: 20181010
  Transmission Date: 20190205
  Serious: Yes (Death, Hospitalization)
  Sender: FDA-Public Use
  Company Number: FR-SA-2018SA276951

PATIENT
  Age: 59 Year
  Sex: Female
  Weight: 73 kg

DRUGS (4)
  1. ELOXATIN [Suspect]
     Active Substance: OXALIPLATIN
     Indication: PANCREATIC CARCINOMA
     Dosage: UNK UNK, UNK
     Route: 042
     Dates: start: 20180813, end: 20180813
  2. EMEND [Suspect]
     Active Substance: APREPITANT
     Dosage: UNK UNK, UNK
     Route: 042
     Dates: start: 20180813, end: 20180813
  3. FOLINATE DE CALCIUM ZENTIVA [Suspect]
     Active Substance: LEUCOVORIN CALCIUM
     Dosage: UNK UNK, UNK
     Route: 042
     Dates: start: 20180813, end: 20180813
  4. ONDANSETRON HYDROCHLORIDE. [Suspect]
     Active Substance: ONDANSETRON HYDROCHLORIDE
     Dosage: UNK UNK, UNK
     Route: 042
     Dates: start: 20180813, end: 20180813

REACTIONS (2)
  - Anaphylactic reaction [Fatal]
  - Cardio-respiratory arrest [Fatal]

NARRATIVE: CASE EVENT DATE: 20180813
